FAERS Safety Report 7504870-X (Version None)
Quarter: 2011Q2

REPORT INFORMATION
  Report Type: 
  Country: None (occurrence: None)
  Receive Date: 20110526
  Receipt Date: 20110518
  Transmission Date: 20111010
  Serious: Yes (Hospitalization)
  Sender: FDA-Public Use
  Company Number: US-BIOGENIDEC-2008BI029373

PATIENT
  Age: 31 Year
  Sex: Female

DRUGS (11)
  1. PHENERGAN HCL [Concomitant]
  2. BETAMETHASONE [Concomitant]
     Indication: MATERNAL THERAPY TO ENHANCE FOETAL LUNG MATURITY
  3. TYSABRI [Suspect]
     Route: 042
     Dates: start: 20090721
  4. PRENATAL VITAMINS [Concomitant]
  5. LYRICA [Concomitant]
     Indication: NEUROPATHY PERIPHERAL
     Dates: start: 20050101
  6. ROCEPHIN [Concomitant]
     Indication: PNEUMONIA ASPIRATION
     Dates: start: 20090401
  7. CHANTIX [Concomitant]
  8. TYSABRI [Suspect]
     Indication: MULTIPLE SCLEROSIS
     Route: 042
     Dates: start: 20080521, end: 20080923
  9. SEROQUEL [Concomitant]
     Indication: INSOMNIA
     Dates: start: 20040101
  10. LIPITOR [Concomitant]
     Indication: BLOOD CHOLESTEROL INCREASED
     Dates: start: 20060101
  11. ADDERALL 10 [Concomitant]

REACTIONS (19)
  - APNOEA [None]
  - BACTERIAL TEST POSITIVE [None]
  - URINE ANALYSIS ABNORMAL [None]
  - PREGNANCY [None]
  - URINE ANALYSIS [None]
  - WHITE BLOOD CELLS URINE [None]
  - CAESAREAN SECTION [None]
  - OVERDOSE [None]
  - UNRESPONSIVE TO STIMULI [None]
  - DRUG EXPOSURE DURING PREGNANCY [None]
  - SYNCOPE [None]
  - HOSTILITY [None]
  - HAEMATOCRIT DECREASED [None]
  - RED BLOOD CELLS URINE [None]
  - TACHYCARDIA [None]
  - PNEUMONIA ASPIRATION [None]
  - RESPIRATORY RATE DECREASED [None]
  - MATERNAL USE OF ILLICIT DRUGS [None]
  - HAEMOGLOBIN DECREASED [None]
